FAERS Safety Report 9056041 (Version 55)
Quarter: 2018Q2

REPORT INFORMATION
  Report Type: Report from Study
  Country: CA (occurrence: CA)
  Receive Date: 20130205
  Receipt Date: 20180606
  Transmission Date: 20180711
  Serious: Yes (Hospitalization, Other)
  Sender: FDA-Public Use
  Company Number: PHHY2011CA58982

PATIENT
  Age: 45 Year
  Sex: Male

DRUGS (4)
  1. SANDOSTATIN LAR DEPOT [Suspect]
     Active Substance: OCTREOTIDE ACETATE
     Dosage: 40 MG, QMO
     Route: 030
  2. SANDOSTATIN LAR DEPOT [Suspect]
     Active Substance: OCTREOTIDE ACETATE
     Dosage: 40 MG, QMO
     Route: 030
     Dates: start: 20150508
  3. SANDOSTATIN LAR DEPOT [Suspect]
     Active Substance: OCTREOTIDE ACETATE
     Indication: NEUROENDOCRINE TUMOUR
     Dosage: 30 MG, QMO
     Route: 030
     Dates: start: 20110602
  4. ATIVAN [Concomitant]
     Active Substance: LORAZEPAM
     Indication: PRODUCT USED FOR UNKNOWN INDICATION
     Route: 065

REACTIONS (61)
  - Abdominal pain [Not Recovered/Not Resolved]
  - Nausea [Unknown]
  - Malaise [Unknown]
  - Nephrolithiasis [Recovered/Resolved]
  - Haemorrhoids [Unknown]
  - Haemorrhoidal haemorrhage [Unknown]
  - Feeling cold [Unknown]
  - Crying [Unknown]
  - Anxiety [Not Recovered/Not Resolved]
  - Musculoskeletal pain [Unknown]
  - Chills [Recovering/Resolving]
  - Nasopharyngitis [Recovering/Resolving]
  - Flatulence [Unknown]
  - Injection site pain [Unknown]
  - Fall [Unknown]
  - Haematemesis [Recovered/Resolved]
  - Rectal haemorrhage [Unknown]
  - Syncope [Unknown]
  - Blood pressure fluctuation [Unknown]
  - Insomnia [Unknown]
  - Fatigue [Recovering/Resolving]
  - Road traffic accident [Unknown]
  - Diarrhoea [Unknown]
  - Feeling of despair [Unknown]
  - Pallor [Unknown]
  - Stress [Unknown]
  - Oropharyngeal pain [Recovering/Resolving]
  - Throat tightness [Recovering/Resolving]
  - Faeces discoloured [Recovered/Resolved]
  - Dizziness [Unknown]
  - Nephrolithiasis [Recovered/Resolved]
  - Back pain [Recovered/Resolved]
  - Malignant neoplasm progression [Unknown]
  - Injection site haemorrhage [Unknown]
  - Abdominal neoplasm [Unknown]
  - Blood pressure increased [Unknown]
  - Depression [Unknown]
  - Body temperature decreased [Unknown]
  - Sneezing [Recovering/Resolving]
  - Hot flush [Recovering/Resolving]
  - Lethargy [Unknown]
  - Blood pressure decreased [Unknown]
  - Loss of consciousness [Unknown]
  - Pain [Recovering/Resolving]
  - Constipation [Unknown]
  - Needle issue [Unknown]
  - Gallbladder disorder [Unknown]
  - Proctalgia [Unknown]
  - Flank pain [Unknown]
  - Metastases to liver [Unknown]
  - Arthralgia [Recovered/Resolved]
  - Discomfort [Unknown]
  - Blood pressure systolic increased [Unknown]
  - Cough [Recovering/Resolving]
  - Headache [Unknown]
  - Vomiting [Unknown]
  - Nephrolithiasis [Unknown]
  - Spinal fracture [Unknown]
  - Emotional disorder [Unknown]
  - Renal pain [Unknown]
  - Pain [Recovered/Resolved]

NARRATIVE: CASE EVENT DATE: 20120104
